FAERS Safety Report 6837923-X (Version None)
Quarter: 2010Q3

REPORT INFORMATION
  Report Type: 
  Country: None (occurrence: None)
  Receive Date: 20100713
  Receipt Date: 20070524
  Transmission Date: 20110219
  Serious: No
  Sender: FDA-Public Use
  Company Number: US-PFIZER INC-2007043119

PATIENT
  Sex: Female
  Weight: 63.6 kg

DRUGS (2)
  1. CHANTIX [Suspect]
     Indication: SMOKING CESSATION THERAPY
     Dates: start: 20070504
  2. COFFEE [Suspect]
     Indication: SOMNOLENCE

REACTIONS (5)
  - CONSTIPATION [None]
  - FATIGUE [None]
  - INSOMNIA [None]
  - MALAISE [None]
  - SOMNOLENCE [None]
